FAERS Safety Report 7128104-3 (Version None)
Quarter: 2010Q4

REPORT INFORMATION
  Report Type: 
  Country: None (occurrence: None)
  Receive Date: 20101130
  Receipt Date: 20101119
  Transmission Date: 20110411
  Serious: Yes (Disabling, Other)
  Sender: FDA-Public Use
  Company Number: FR-BRISTOL-MYERS SQUIBB COMPANY-15329287

PATIENT
  Age: 55 Year
  Sex: Female

DRUGS (4)
  1. CETUXIMAB [Suspect]
     Indication: HEAD AND NECK CANCER
     Route: 042
     Dates: start: 20100615
  2. CISPLATIN [Suspect]
     Indication: HEAD AND NECK CANCER
     Route: 042
     Dates: start: 20100615
  3. CILENGITIDE [Suspect]
     Indication: HEAD AND NECK CANCER
     Route: 042
     Dates: start: 20100615
  4. FLUOROURACIL [Suspect]
     Indication: HEAD AND NECK CANCER
     Dosage: CONTINOUS INFUSION FROM DAY 1 TO 4 OF CYCLE
     Route: 042
     Dates: start: 20100615

REACTIONS (1)
  - DEAFNESS [None]
